FAERS Safety Report 7239374-5 (Version None)
Quarter: 2011Q1

REPORT INFORMATION
  Report Type: 
  Country: None (occurrence: None)
  Receive Date: 20110121
  Receipt Date: 20110119
  Transmission Date: 20110831
  Serious: Yes (Hospitalization)
  Sender: FDA-Public Use
  Company Number: CA-ALLERGAN-1016057US

PATIENT
  Age: 34 Year
  Sex: Male

DRUGS (2)
  1. BOTOXA? [Suspect]
     Indication: HYPERHIDROSIS
     Dosage: 150 UNITS, SINGLE
     Dates: start: 20101201, end: 20101201
  2. RITALIN [Concomitant]
     Dosage: UNK

REACTIONS (1)
  - GUILLAIN-BARRE SYNDROME [None]
